FAERS Safety Report 7069183-1 (Version None)
Quarter: 2010Q4

REPORT INFORMATION
  Report Type: 
  Country: None (occurrence: None)
  Receive Date: 20101028
  Receipt Date: 20101020
  Transmission Date: 20110411
  Serious: Yes (Other)
  Sender: FDA-Public Use
  Company Number: B0669175A

PATIENT
  Sex: Female
  Weight: 58 kg

DRUGS (3)
  1. LAMICTAL [Suspect]
     Indication: EPILEPSY
     Route: 048
     Dates: start: 20100623, end: 20100711
  2. DEPAKENE [Concomitant]
     Indication: EPILEPSY
     Route: 048
  3. CARBAMAZEPINE [Concomitant]
     Indication: EPILEPSY
     Dosage: 200MG PER DAY
     Route: 048
     Dates: end: 20100315

REACTIONS (2)
  - DRUG ERUPTION [None]
  - HEPATIC FAILURE [None]
